FAERS Safety Report 8575193-5 (Version None)
Quarter: 2012Q2

REPORT INFORMATION
  Report Type: 
  Country: None (occurrence: None)
  Receive Date: 20120423
  Receipt Date: 20090826
  Transmission Date: 20120825
  Serious: Yes (Other)
  Sender: FDA-Public Use
  Company Number: PHEH2009US08636

PATIENT
  Age: 47 Year
  Sex: Male
  Weight: 100 kg

DRUGS (4)
  1. EXJADE [Suspect]
     Indication: IRON OVERLOAD
     Dosage: 2000 MG, QD, ORAL
     Route: 048
     Dates: start: 20090601, end: 20090729
  2. PROGRAF [Suspect]
     Indication: IMMUNOSUPPRESSION
     Dosage: 2. 1.5 MG, BID
     Dates: start: 20090401, end: 20090715
  3. PROGRAF [Suspect]
     Indication: APLASTIC ANAEMIA
     Dosage: 2. 1.5 MG, BID
     Dates: start: 20090401, end: 20090715
  4. TRANSFUSIONS (NO INGREDIENTS/SUBSTANCES) [Concomitant]

REACTIONS (2)
  - RENAL FAILURE ACUTE [None]
  - BLOOD CREATININE INCREASED [None]
